FAERS Safety Report 25071526 (Version 1)
Quarter: 2025Q1

REPORT INFORMATION
  Report Type: Report from Study
  Country: PR (occurrence: PR)
  Receive Date: 20250312
  Receipt Date: 20250312
  Transmission Date: 20250409
  Serious: Yes (Other)
  Sender: ABBVIE
  Company Number: PR-ABBVIE-5848009

PATIENT
  Age: 18 Year
  Sex: Female
  Weight: 66.224 kg

DRUGS (1)
  1. HUMIRA [Suspect]
     Active Substance: ADALIMUMAB
     Indication: Hidradenitis
     Dosage: CITRATE FREE
     Route: 058
     Dates: start: 20220328

REACTIONS (4)
  - Dacryostenosis acquired [Recovering/Resolving]
  - Breast abscess [Recovering/Resolving]
  - Abscess limb [Recovering/Resolving]
  - Abscess of eyelid [Recovering/Resolving]

NARRATIVE: CASE EVENT DATE: 20240901
